FAERS Safety Report 7527481-9 (Version None)
Quarter: 2011Q2

REPORT INFORMATION
  Report Type: 
  Country: None (occurrence: None)
  Receive Date: 20110527
  Receipt Date: 20110513
  Transmission Date: 20111010
  Serious: Yes (Hospitalization)
  Sender: FDA-Public Use
  Company Number: AUR-APL-2011-01735

PATIENT
  Age: 60 Year
  Sex: Male

DRUGS (10)
  1. VENLAFAXINE [Suspect]
  2. ST. JOHN'S WORT [Suspect]
  3. AZITHROMYCIN [Suspect]
     Indication: UPPER RESPIRATORY TRACT INFECTION
  4. DIAZEPAM [Suspect]
  5. TESTOSTERONE [Suspect]
  6. OMEPRAZOLE [Suspect]
  7. PREDNISOLONE TAB [Suspect]
  8. ASPIRIN [Suspect]
  9. ATORVASTATIN [Suspect]
  10. BUDESONIDE [Suspect]

REACTIONS (11)
  - TUBULOINTERSTITIAL NEPHRITIS [None]
  - HEART RATE INCREASED [None]
  - THROMBOSIS [None]
  - FATIGUE [None]
  - THIRST [None]
  - HAEMATOCRIT DECREASED [None]
  - ANXIETY [None]
  - POLLAKIURIA [None]
  - HYPOTENSION [None]
  - GASTRIC ULCER [None]
  - GASTRITIS EROSIVE [None]
